FAERS Safety Report 20208558 (Version 1)
Quarter: 2021Q4

REPORT INFORMATION
  Report Type: Spontaneous
  Country: CA (occurrence: CA)
  Receive Date: 20211220
  Receipt Date: 20211220
  Transmission Date: 20220303
  Serious: Yes (Death, Other)
  Sender: FDA-Public Use
  Company Number: CA-TEVA-2021-CA-1988963

PATIENT
  Age: 41 Year
  Sex: Male
  Weight: 58 kg

DRUGS (1)
  1. SILDENAFIL CITRATE [Suspect]
     Active Substance: SILDENAFIL CITRATE
     Indication: Pulmonary arterial hypertension
     Dosage: 60 MILLIGRAM DAILY;
     Route: 048

REACTIONS (2)
  - Death [Fatal]
  - Drug ineffective [Fatal]
